FAERS Safety Report 17761326 (Version 3)
Quarter: 2020Q3

REPORT INFORMATION
  Report Type: Spontaneous
  Country: US (occurrence: US)
  Receive Date: 20200508
  Receipt Date: 20200702
  Transmission Date: 20201102
  Serious: No
  Sender: FDA-Public Use
  Company Number: US-HTU-2020US020524

PATIENT
  Age: 65 Year
  Sex: Male

DRUGS (1)
  1. VALCHLOR [Suspect]
     Active Substance: MECHLORETHAMINE
     Indication: CUTANEOUS T-CELL LYMPHOMA
     Dosage: UNK, QD
     Route: 061
     Dates: start: 20200221, end: 2020

REACTIONS (7)
  - Application site vesicles [Recovered/Resolved]
  - Application site erythema [Recovered/Resolved]
  - Application site scab [Unknown]
  - Application site exfoliation [Unknown]
  - Condition aggravated [Recovering/Resolving]
  - Application site pain [Recovered/Resolved]
  - Application site swelling [Recovering/Resolving]

NARRATIVE: CASE EVENT DATE: 20200411
